FAERS Safety Report 8408720-9 (Version None)
Quarter: 2012Q2

REPORT INFORMATION
  Report Type: 
  Country: None (occurrence: None)
  Receive Date: 20120604
  Receipt Date: 20120531
  Transmission Date: 20120825
  Serious: No
  Sender: FDA-Public Use
  Company Number: US-TEVA-340908USA

PATIENT
  Sex: Female

DRUGS (1)
  1. AZILECT [Suspect]
     Route: 048

REACTIONS (6)
  - ARTHRALGIA [None]
  - TREMOR [None]
  - MYALGIA [None]
  - HYPERHIDROSIS [None]
  - MICTURITION URGENCY [None]
  - HEADACHE [None]
